FAERS Safety Report 15469167 (Version 3)
Quarter: 2019Q1

REPORT INFORMATION
  Report Type: Report from Study
  Country: None (occurrence: US)
  Receive Date: 20181005
  Receipt Date: 20190107
  Transmission Date: 20190417
  Serious: Yes (Hospitalization, Other)
  Sender: FDA-Public Use
  Company Number: US-ABBVIE-18K-163-2504861-00

PATIENT
  Age: 70 Year
  Sex: Male
  Weight: 81.72 kg

DRUGS (1)
  1. HUMIRA [Suspect]
     Active Substance: ADALIMUMAB
     Indication: CROHN^S DISEASE
     Route: 058
     Dates: start: 2018

REACTIONS (2)
  - Large intestinal obstruction [Recovered/Resolved]
  - Procedural pain [Unknown]

NARRATIVE: CASE EVENT DATE: 2018
